FAERS Safety Report 15296352 (Version 3)
Quarter: 2019Q3

REPORT INFORMATION
  Report Type: Spontaneous
  Country: CA (occurrence: CA)
  Receive Date: 20180820
  Receipt Date: 20190805
  Transmission Date: 20191004
  Serious: Yes (Life-Threatening, Hospitalization, Other)
  Sender: FDA-Public Use
  Company Number: CA-PFIZER INC-2018332254

PATIENT
  Age: 83 Year
  Sex: Male
  Weight: 77 kg

DRUGS (12)
  1. MYCAMINE [Suspect]
     Active Substance: MICAFUNGIN SODIUM
     Indication: IMMUNODEFICIENCY
  2. METHOTREXATE SODIUM. [Suspect]
     Active Substance: METHOTREXATE SODIUM
     Indication: RHEUMATOID ARTHRITIS
     Dosage: 25.0 MG, WEEKLY
     Route: 048
  3. METRONIDAZOLE. [Suspect]
     Active Substance: METRONIDAZOLE
     Indication: URETHRITIS
     Dosage: 500 MG, 3X/DAY(EVERY 8 HOUR)
     Route: 042
  4. ACICLOVIR [Suspect]
     Active Substance: ACYCLOVIR
     Indication: HERPES SIMPLEX OESOPHAGITIS
     Dosage: 750.0 MG, 1X/DAY
     Route: 042
  5. MEROPENEM. [Suspect]
     Active Substance: MEROPENEM
     Indication: URINARY TRACT INFECTION
     Dosage: 1 G, 2X/DAY (EVERY 12HOURS)
     Route: 042
  6. MEROPENEM. [Suspect]
     Active Substance: MEROPENEM
     Indication: IMMUNODEFICIENCY
  7. METRONIDAZOLE. [Suspect]
     Active Substance: METRONIDAZOLE
     Indication: CLOSTRIDIUM DIFFICILE INFECTION
  8. VANCOMYCIN HCL [Suspect]
     Active Substance: VANCOMYCIN HYDROCHLORIDE
     Indication: KIDNEY INFECTION
     Dosage: 2 G, ONCE
     Route: 042
  9. HUMIRA [Suspect]
     Active Substance: ADALIMUMAB
     Indication: RHEUMATOID ARTHRITIS
     Dosage: 40 MG, CYCLIC (EVERY 2 WEEKS)
     Route: 058
  10. MEROPENEM. [Suspect]
     Active Substance: MEROPENEM
     Indication: PSEUDOMONAS INFECTION
  11. METRONIDAZOLE. [Suspect]
     Active Substance: METRONIDAZOLE
     Indication: IMMUNODEFICIENCY
  12. MYCAMINE [Suspect]
     Active Substance: MICAFUNGIN SODIUM
     Indication: URETHRITIS
     Dosage: 100 MG, 2X/DAY (EVERY 12 HOURS)
     Route: 042

REACTIONS (9)
  - Infection [Not Recovered/Not Resolved]
  - C-reactive protein increased [Not Recovered/Not Resolved]
  - Glomerular filtration rate decreased [Not Recovered/Not Resolved]
  - White blood cell count increased [Not Recovered/Not Resolved]
  - Dysphagia [Not Recovered/Not Resolved]
  - Anaemia [Not Recovered/Not Resolved]
  - Herpes simplex oesophagitis [Not Recovered/Not Resolved]
  - Asthenia [Not Recovered/Not Resolved]
  - Renal failure [Not Recovered/Not Resolved]
